FAERS Safety Report 12790162 (Version 2)
Quarter: 2016Q4

REPORT INFORMATION
  Report Type: Spontaneous
  Country: SK (occurrence: SK)
  Receive Date: 20160928
  Receipt Date: 20161007
  Transmission Date: 20170207
  Serious: Yes (Other)
  Sender: FDA-Public Use
  Company Number: SK-009507513-1609SVK011410

PATIENT
  Age: 71 Year
  Sex: Male
  Weight: 82 kg

DRUGS (4)
  1. TANATRIL [Concomitant]
     Active Substance: IMIDAPRIL
     Dosage: UNK, PRN
  2. WARFARIN [Concomitant]
     Active Substance: WARFARIN
     Dosage: UNK, QD
  3. NASONEX [Suspect]
     Active Substance: MOMETASONE FUROATE
     Indication: NASAL CONGESTION
     Dosage: UNK
     Dates: start: 20160909, end: 20160921
  4. RYTMONORM [Concomitant]
     Active Substance: PROPAFENONE
     Dosage: UNK, TID

REACTIONS (1)
  - Arrhythmia [Recovered/Resolved]

NARRATIVE: CASE EVENT DATE: 20160909
